FAERS Safety Report 5054035-9 (Version None)
Quarter: 2006Q2

REPORT INFORMATION
  Report Type: 
  Country: None (occurrence: None)
  Receive Date: 20060616
  Receipt Date: 20050711
  Transmission Date: 20061013
  Serious: Yes (Hospitalization)
  Sender: FDA-Public Use
  Company Number: 200515691US

PATIENT
  Age: 71 Year
  Sex: Female

DRUGS (10)
  1. LANTUS [Suspect]
     Indication: DIABETES MELLITUS
  2. HUMALOG [Suspect]
  3. AMLODIPINE [Concomitant]
  4. BENAZEPRIL HYDROCHLORIDE (LOTREL) [Concomitant]
  5. PREVACID [Concomitant]
  6. PREVASTATIN SODIUM (PRAVACHOL) [Concomitant]
  7. TOPROL-XL [Concomitant]
  8. ZETIA [Concomitant]
  9. CANESARTAN CILEXETIL (ATACAND) [Concomitant]
  10. HUMALOG [Concomitant]

REACTIONS (1)
  - HYPOGLYCAEMIA [None]
